FAERS Safety Report 9272578 (Version 5)
Quarter: 2013Q3

REPORT INFORMATION
  Report Type: Report from Study
  Country: GB (occurrence: GB)
  Receive Date: 20130506
  Receipt Date: 20130705
  Transmission Date: 20140515
  Serious: Yes (Hospitalization)
  Sender: FDA-Public Use
  Company Number: GB-GLAXOSMITHKLINE-B0888856B

PATIENT
  Age: 57 Year
  Sex: Female
  Weight: 55.8 kg

DRUGS (5)
  1. PAZOPANIB [Suspect]
     Indication: BLADDER TRANSITIONAL CELL CARCINOMA
     Dosage: 800MG PER DAY
     Route: 048
     Dates: start: 20130403, end: 20130422
  2. GABAPENTIN [Concomitant]
     Indication: NEURALGIA
     Dosage: 300MG THREE TIMES PER DAY
     Route: 048
     Dates: start: 20130403
  3. COCODAMOL [Concomitant]
     Indication: PAIN
     Dosage: 30.5MG AS REQUIRED
     Route: 048
     Dates: start: 201303
  4. DALTEPARIN [Concomitant]
     Indication: PULMONARY EMBOLISM
     Dosage: 10000UNIT PER DAY
     Route: 058
     Dates: start: 20121017
  5. CLARITHROMYCIN [Concomitant]
     Indication: RASH
     Dosage: 250MG PER DAY
     Route: 048
     Dates: start: 20070903

REACTIONS (3)
  - Pyrexia [Recovered/Resolved]
  - Rash maculo-papular [Recovered/Resolved]
  - Alanine aminotransferase increased [Recovered/Resolved]
